FAERS Safety Report 10185436 (Version 1)
Quarter: 2014Q2

REPORT INFORMATION
  Report Type: Spontaneous
  Country: US (occurrence: None)
  Receive Date: 20140520
  Receipt Date: 20140520
  Transmission Date: 20141212
  Serious: Yes (Death, Hospitalization)
  Sender: FDA-Public Use
  Company Number: None

PATIENT
  Age: 34 Year
  Sex: Male

DRUGS (6)
  1. AZITHROMYCIN [Suspect]
     Indication: INFECTION
     Route: 048
     Dates: start: 20121107, end: 20121120
  2. BECLOFEN [Concomitant]
  3. IMIPENEM/CILASTATIN [Concomitant]
  4. AMIODARONE [Concomitant]
  5. DIGOXIN [Concomitant]
  6. LANSOPRAZOLE [Concomitant]

REACTIONS (4)
  - Cardiac arrest [None]
  - Ventricular tachycardia [None]
  - Ventricular fibrillation [None]
  - General physical health deterioration [None]
